FAERS Safety Report 15783661 (Version 1)
Quarter: 2019Q1

REPORT INFORMATION
  Report Type: Spontaneous
  Country: US (occurrence: US)
  Receive Date: 20190102
  Receipt Date: 20190102
  Transmission Date: 20190417
  Serious: No
  Sender: FDA-Public Use
  Company Number: US-009507513-1812USA012578

PATIENT
  Age: 61 Year
  Sex: Male
  Weight: 104 kg

DRUGS (7)
  1. LEVOFLOXACIN. [Concomitant]
     Active Substance: LEVOFLOXACIN
     Indication: PROPIONIBACTERIUM INFECTION
     Dosage: 750 MILLIGRAM, QD
     Route: 048
  2. RIFAMPIN. [Concomitant]
     Active Substance: RIFAMPIN
     Indication: STAPHYLOCOCCAL INFECTION
  3. CUBICIN [Suspect]
     Active Substance: DAPTOMYCIN
     Indication: STAPHYLOCOCCAL INFECTION
     Dosage: UNK
     Route: 042
     Dates: start: 2016
  4. VANCOMYCIN [Concomitant]
     Active Substance: VANCOMYCIN
     Indication: PROPIONIBACTERIUM INFECTION
     Dosage: UNK
     Route: 042
  5. RIFAMPIN. [Concomitant]
     Active Substance: RIFAMPIN
     Indication: PROPIONIBACTERIUM INFECTION
     Dosage: 300 MILLIGRAM, TWICE A DAY
     Route: 048
  6. CUBICIN [Suspect]
     Active Substance: DAPTOMYCIN
     Dosage: UNK
     Route: 042
     Dates: start: 2016
  7. CUBICIN [Suspect]
     Active Substance: DAPTOMYCIN
     Indication: PROPIONIBACTERIUM INFECTION
     Dosage: DAILY
     Route: 042
     Dates: start: 2016

REACTIONS (1)
  - Product use in unapproved indication [Unknown]
